FAERS Safety Report 23416024 (Version 1)
Quarter: 2024Q1

REPORT INFORMATION
  Report Type: Spontaneous
  Country: US (occurrence: US)
  Receive Date: 20240118
  Receipt Date: 20240118
  Transmission Date: 20240410
  Serious: Yes (Life-Threatening, Hospitalization, Other)
  Sender: FDA-Public Use
  Company Number: US-PFIZER INC-PV202400006359

PATIENT
  Age: 17 Year
  Sex: Female
  Weight: 56.236 kg

DRUGS (2)
  1. VERAPAMIL HCL [Suspect]
     Active Substance: VERAPAMIL HYDROCHLORIDE
     Indication: Atrial tachycardia
     Dosage: APPROXIMATELY TWO OF THE VERAPAMIL CAPLETS
  2. ACEBUTOLOL [Suspect]
     Active Substance: ACEBUTOLOL
     Indication: Atrial tachycardia
     Dosage: UNKNOWN NUMBER OF CAPSULES

REACTIONS (5)
  - Accidental overdose [Recovered/Resolved]
  - Cardiogenic shock [Recovered/Resolved]
  - Altered state of consciousness [Recovered/Resolved]
  - Cardiac arrest [Recovered/Resolved]
  - Off label use [Unknown]
